FAERS Safety Report 9268484 (Version 2)
Quarter: 2013Q2

REPORT INFORMATION
  Report Type: Report from Study
  Country: US (occurrence: US)
  Receive Date: 20130502
  Receipt Date: 20130529
  Transmission Date: 20140414
  Serious: Yes (Hospitalization, Other)
  Sender: FDA-Public Use
  Company Number: US-ALEXION-A201202295

PATIENT
  Age: 19 Year
  Sex: Female
  Weight: 61 kg

DRUGS (19)
  1. SOLIRIS [Suspect]
     Indication: HAEMOLYTIC URAEMIC SYNDROME
     Dosage: 900 MG, QW
     Route: 042
     Dates: start: 20120925
  2. SOLIRIS [Suspect]
     Dosage: 1200 MG, Q2W
     Route: 042
     Dates: start: 20121023, end: 20121106
  3. SOLIRIS [Suspect]
     Dosage: 900 MG, SINGLE
     Route: 042
     Dates: start: 20121127, end: 20121127
  4. AMLODIPINE [Concomitant]
     Indication: HYPERTENSION
     Dosage: 10 MG, BID
     Route: 048
  5. CALCIUM CARBONATE [Concomitant]
     Indication: PRODUCT USED FOR UNKNOWN INDICATION
     Dosage: 1250 MG, TID
     Route: 048
  6. VITAMIN D3 [Concomitant]
     Indication: VITAMIN D DEFICIENCY
     Dosage: 2000 DF, QD
     Route: 048
  7. CLONIDINE [Concomitant]
     Indication: HYPERTENSION
     Dosage: 1 DF, QW
     Route: 062
  8. COLACE [Concomitant]
     Indication: CONSTIPATION
     Dosage: 250 MG, BID
     Route: 048
  9. FOLIC ACID [Concomitant]
     Indication: SUPPLEMENTATION THERAPY
     Dosage: 400 ?G, QD
     Route: 048
  10. LASIX [Concomitant]
     Indication: FLUID OVERLOAD
     Dosage: 15 MG, QD
     Route: 042
  11. LASIX [Concomitant]
     Dosage: 20 MG, QD
     Route: 042
  12. HEPARIN [Concomitant]
     Indication: CENTRAL VENOUS CATHETERISATION
     Dosage: 20 DF, QD
     Route: 042
  13. MAGNESIUM OXIDE [Concomitant]
     Indication: BLOOD MAGNESIUM DECREASED
     Dosage: 400 MG, BID
     Route: 048
  14. METHADONE [Concomitant]
     Indication: PAIN
     Dosage: 2.5 MG, BID
     Route: 048
  15. METHYLPREDNISOLONE [Concomitant]
     Indication: MICROANGIOPATHY
     Dosage: 0.5 MG/KG, BID
     Route: 042
  16. NIFEDIPINE [Concomitant]
     Indication: HYPERTENSION
     Dosage: 2.5 MG, QD
     Route: 048
  17. RANITIDINE [Concomitant]
     Indication: PROPHYLAXIS AGAINST GASTROINTESTINAL ULCER
     Dosage: 75 MG, BID
     Route: 048
  18. SENNA [Concomitant]
     Indication: CONSTIPATION
     Dosage: 8.6 MG, QD
     Route: 048
  19. N-ACETYLCYSTEINE [Concomitant]

REACTIONS (23)
  - Grand mal convulsion [Recovered/Resolved]
  - Hypertension [Not Recovered/Not Resolved]
  - Fluid overload [Not Recovered/Not Resolved]
  - Stomatitis [Unknown]
  - Meningitis [Unknown]
  - Pericarditis [Unknown]
  - Multimorbidity [Unknown]
  - Renal failure [Unknown]
  - Convulsion [Unknown]
  - Heart sounds abnormal [Unknown]
  - Pericardial effusion [Unknown]
  - Condition aggravated [Unknown]
  - Transfusion [Unknown]
  - Encephalitis [Recovering/Resolving]
  - Thrombotic microangiopathy [Unknown]
  - Condition aggravated [Unknown]
  - Basal ganglia infarction [Unknown]
  - Headache [Unknown]
  - Oedema [Unknown]
  - Vision blurred [Unknown]
  - Epistaxis [Unknown]
  - Herpes simplex [Not Recovered/Not Resolved]
  - No therapeutic response [Unknown]
